FAERS Safety Report 17001855 (Version 1)
Quarter: 2019Q4

REPORT INFORMATION
  Report Type: Spontaneous
  Country: US (occurrence: US)
  Receive Date: 20191106
  Receipt Date: 20191106
  Transmission Date: 20200122
  Serious: No
  Sender: FDA-Public Use
  Company Number: US-PFIZER INC-2019475998

PATIENT
  Age: 25 Year
  Sex: Female

DRUGS (1)
  1. TOFACITINIB [Suspect]
     Active Substance: TOFACITINIB
     Indication: ALOPECIA AREATA
     Dosage: 5 MG, 2X/DAY

REACTIONS (3)
  - Product use in unapproved indication [Unknown]
  - Oral herpes [Unknown]
  - Off label use [Unknown]
